FAERS Safety Report 7722349-7 (Version None)
Quarter: 2011Q3

REPORT INFORMATION
  Report Type: 
  Country: None (occurrence: None)
  Receive Date: 20110831
  Receipt Date: 20110822
  Transmission Date: 20111222
  Serious: Yes (Hospitalization, Other)
  Sender: FDA-Public Use
  Company Number: US-US-EMD SERONO, INC.-7066234

PATIENT
  Sex: Male
  Weight: 104 kg

DRUGS (7)
  1. GABAPENTIN [Concomitant]
     Indication: NEURALGIA
  2. KEPRA [Concomitant]
     Indication: EPILEPSY
  3. LEVETIRACETAM [Concomitant]
     Indication: CONVULSION
     Dates: start: 20070101
  4. REBIF [Suspect]
     Route: 058
  5. CLONAZEPAM [Concomitant]
     Indication: ANXIETY
  6. UNSPECIFIED MEDICATION [Concomitant]
  7. REBIF [Suspect]
     Indication: MULTIPLE SCLEROSIS
     Route: 058
     Dates: start: 20110612

REACTIONS (5)
  - MIGRAINE [None]
  - MULTIPLE SCLEROSIS RELAPSE [None]
  - FEELING HOT [None]
  - SPINAL FRACTURE [None]
  - INSOMNIA [None]
